FAERS Safety Report 16420101 (Version 2)
Quarter: 2020Q2

REPORT INFORMATION
  Report Type: Spontaneous
  Country: US (occurrence: US)
  Receive Date: 20190612
  Receipt Date: 20200515
  Transmission Date: 20200713
  Serious: Yes (Death, Other)
  Sender: FDA-Public Use
  Company Number: US-ASTRAZENECA-2019SE85665

PATIENT
  Age: 71 Year
  Sex: Male
  Weight: 93.4 kg

DRUGS (16)
  1. ALLOPURINOL. [Concomitant]
     Active Substance: ALLOPURINOL
  2. COUMADIN [Concomitant]
     Active Substance: WARFARIN SODIUM
  3. BYDUREON [Suspect]
     Active Substance: EXENATIDE
     Route: 065
     Dates: start: 20130828, end: 201512
  4. TRILIPIX [Concomitant]
     Active Substance: FENOFIBRIC ACID
  5. CAPTOPRIL W/HYDROCHLOROTHIAZIDE [Concomitant]
  6. BYETTA [Suspect]
     Active Substance: EXENATIDE
     Indication: TYPE 2 DIABETES MELLITUS
     Route: 065
     Dates: start: 20100716, end: 201308
  7. METFORMIN HYDROCHLORIDE. [Concomitant]
     Active Substance: METFORMIN HYDROCHLORIDE
  8. TRAZODONE HYDROCHLORIDE. [Concomitant]
     Active Substance: TRAZODONE HYDROCHLORIDE
  9. PRADAXA [Concomitant]
     Active Substance: DABIGATRAN ETEXILATE MESYLATE
  10. CHLOR-TRIMETON [Concomitant]
     Active Substance: CHLORPHENIRAMINE MALEATE
  11. GLIMEPIRIDE. [Concomitant]
     Active Substance: GLIMEPIRIDE
  12. CAPOZIDE [Concomitant]
     Active Substance: CAPTOPRIL\HYDROCHLOROTHIAZIDE
  13. LANTUS SOLOSTAR [Concomitant]
     Active Substance: INSULIN GLARGINE
  14. RAPAFLO [Concomitant]
     Active Substance: SILODOSIN
  15. DILTIAZEM HYDROCHLORIDE. [Concomitant]
     Active Substance: DILTIAZEM HYDROCHLORIDE
  16. ANASPAZ [Concomitant]
     Active Substance: HYOSCYAMINE SULFATE

REACTIONS (3)
  - Pancreatic carcinoma metastatic [Fatal]
  - Benign pancreatic neoplasm [Unknown]
  - Hepatic cancer [Unknown]

NARRATIVE: CASE EVENT DATE: 2015
